FAERS Safety Report 7678695-9 (Version None)
Quarter: 2011Q3

REPORT INFORMATION
  Report Type: 
  Country: None (occurrence: None)
  Receive Date: 20110811
  Receipt Date: 20110804
  Transmission Date: 20111222
  Serious: Yes (Hospitalization, Other)
  Sender: FDA-Public Use
  Company Number: US-BAYER-2010-007098

PATIENT
  Age: 18 Year
  Sex: Female
  Weight: 108.84 kg

DRUGS (2)
  1. DROSPIRENONE AND ETHINYL ESTRADIOL [Suspect]
     Indication: CONTRACEPTION
     Dosage: UNK
     Dates: start: 20090201, end: 20090301
  2. YASMIN [Suspect]
     Indication: CONTRACEPTION
     Dosage: UNK
     Dates: start: 20080301, end: 20090101

REACTIONS (2)
  - CHOLECYSTITIS ACUTE [None]
  - CHOLELITHIASIS [None]
